FAERS Safety Report 20554769 (Version 1)
Quarter: 2022Q1

REPORT INFORMATION
  Report Type: Report from Study
  Country: US (occurrence: None)
  Receive Date: 20220304
  Receipt Date: 20220304
  Transmission Date: 20220424
  Serious: Yes (Hospitalization)
  Sender: FDA-Public Use
  Company Number: US-Eisai Medical Research-EC-2022-106496

PATIENT
  Age: 79 Year
  Sex: Male

DRUGS (5)
  1. LENVIMA [Suspect]
     Active Substance: LENVATINIB
     Indication: Renal cancer
     Route: 048
     Dates: start: 202112, end: 2021
  2. LENVIMA [Suspect]
     Active Substance: LENVATINIB
     Indication: Renal cancer
     Route: 048
     Dates: start: 20220103, end: 202201
  3. LENVIMA [Suspect]
     Active Substance: LENVATINIB
     Indication: Metastases to lung
     Route: 048
     Dates: start: 202201
  4. LENVIMA [Suspect]
     Active Substance: LENVATINIB
     Indication: Metastases to bone
  5. EVEROLIMUS [Concomitant]
     Active Substance: EVEROLIMUS

REACTIONS (6)
  - Candida infection [Recovered/Resolved]
  - Escherichia infection [Recovered/Resolved]
  - Dermatophytosis [Recovered/Resolved]
  - Tachycardia [Not Recovered/Not Resolved]
  - Hypertension [Not Recovered/Not Resolved]
  - Back pain [Not Recovered/Not Resolved]

NARRATIVE: CASE EVENT DATE: 20220101
